FAERS Safety Report 15488778 (Version 4)
Quarter: 2019Q1

REPORT INFORMATION
  Report Type: Spontaneous
  Country: US (occurrence: US)
  Receive Date: 20181011
  Receipt Date: 20190206
  Transmission Date: 20190417
  Serious: No
  Sender: FDA-Public Use
  Company Number: US-PFIZER INC-2018404640

PATIENT
  Age: 55 Year
  Sex: Female

DRUGS (1)
  1. XELJANZ XR [Suspect]
     Active Substance: TOFACITINIB CITRATE
     Dosage: 11 MG, UNK

REACTIONS (7)
  - Inflammation [Unknown]
  - Arthralgia [Unknown]
  - Dyspepsia [Unknown]
  - Bone disorder [Unknown]
  - Hypertension [Unknown]
  - Headache [Unknown]
  - Constipation [Unknown]
